FAERS Safety Report 8000434-2 (Version None)
Quarter: 2011Q4

REPORT INFORMATION
  Report Type: 
  Country: None (occurrence: None)
  Receive Date: 20111222
  Receipt Date: 20110412
  Transmission Date: 20120403
  Serious: Yes (Other)
  Sender: FDA-Public Use
  Company Number: US-BRISTOL-MYERS SQUIBB COMPANY-15670912

PATIENT
  Age: 73 Year
  Sex: Male
  Weight: 73 kg

DRUGS (10)
  1. LISINOPRIL AND HYDROCHLOROTHIAZIDE [Concomitant]
     Indication: HYPERTENSION
     Dosage: 1 DF: 20/12.5MG
  2. PRAVASTATIN SODIUM [Suspect]
     Dates: start: 20110125, end: 20110101
  3. PLAVIX [Suspect]
     Indication: STENT PLACEMENT
     Dates: start: 20090101, end: 20110101
  4. PLAVIX [Suspect]
     Indication: MYOCARDIAL INFARCTION
     Dates: start: 20090101, end: 20110101
  5. METFORMIN HCL [Concomitant]
     Indication: DIABETES MELLITUS
     Dosage: 1 DF: 2 TABS 500 MG
  6. ASPIRIN [Concomitant]
  7. METOPROLOL TARTRATE [Concomitant]
  8. GLIMEPIRIDE [Concomitant]
     Indication: DIABETES MELLITUS
  9. LIPITOR [Suspect]
     Indication: MYOCARDIAL INFARCTION
     Dosage: FILM COATED TABS
     Route: 048
     Dates: start: 20090101, end: 20110101
  10. FLOMAX [Concomitant]

REACTIONS (3)
  - PAIN IN EXTREMITY [None]
  - FATIGUE [None]
  - MUSCLE DISORDER [None]
